FAERS Safety Report 21027828 (Version 1)
Quarter: 2022Q2

REPORT INFORMATION
  Report Type: Spontaneous
  Country: CH (occurrence: CH)
  Receive Date: 20220630
  Receipt Date: 20220630
  Transmission Date: 20220721
  Serious: Yes (Hospitalization, Other)
  Sender: FDA-Public Use
  Company Number: None

PATIENT
  Age: 80 Year
  Sex: Male

DRUGS (3)
  1. NIVOLUMAB [Suspect]
     Active Substance: NIVOLUMAB
     Indication: Bladder transitional cell carcinoma
     Dosage: CA. ALLE 2 WOCHEN ; CYCLICAL
     Route: 065
     Dates: start: 20220214, end: 20220613
  2. ASPIRIN [Concomitant]
     Active Substance: ASPIRIN
     Indication: Product used for unknown indication
     Route: 048
  3. ATORVASTATIN [Concomitant]
     Active Substance: ATORVASTATIN
     Indication: Product used for unknown indication
     Route: 048

REACTIONS (7)
  - Adrenalitis [Recovering/Resolving]
  - Thyroiditis [Recovering/Resolving]
  - Hyponatraemia [Recovering/Resolving]
  - Atrioventricular block [Recovering/Resolving]
  - Hepatitis [Recovering/Resolving]
  - Myocarditis [Recovering/Resolving]
  - Glucocorticoid deficiency [Recovering/Resolving]

NARRATIVE: CASE EVENT DATE: 20220611
